FAERS Safety Report 8901747 (Version 2)
Quarter: 2012Q4

REPORT INFORMATION
  Report Type: 
  Country: US (occurrence: None)
  Receive Date: 20121105
  Receipt Date: 20121127
  Transmission Date: 20130627
  Serious: Yes (Hospitalization)
  Sender: FDA-Public Use
  Company Number: CIP10001889

PATIENT
  Age: 82 Year
  Sex: Male
  Weight: 65.8 kg

DRUGS (24)
  1. ACTONEL [Suspect]
     Indication: OSTEOPOROSIS
     Route: 048
     Dates: start: 2010, end: 201209
  2. ACTONEL (RISEDRONATE SODIUM) TABLET, 150MG [Suspect]
     Indication: OSTEOPOROSIS
     Route: 048
     Dates: end: 2010
  3. CLONIDINE (CLONIDINE) [Concomitant]
  4. LISINOPRIL (LISINOPRIL) [Concomitant]
  5. ZOCOR (SIMVASTATIN) [Concomitant]
  6. TRELSTAR (TRIPTORELIN EMBONATE) [Concomitant]
  7. VITAMINS NOS (VITAMINS NOS) [Concomitant]
  8. CALCIUM (CALCIUM) [Concomitant]
  9. FOSAMAX (ALENDRONATE SODIUM) [Suspect]
     Route: 048
  10. 3)	ALPRAZOLAM (ALPRAZOLAM) [Concomitant]
  11. AMLODIPINE (AMLODIPINE) [Concomitant]
  12. ASPIRIN (ACETYLSALICYLIC ACID) [Concomitant]
  13. BETAMETHASONE DIPROPIONATE (BETAMETHASONE DIPROPIONATE) [Concomitant]
  14. CALCIUM + VITAMIN D	/01483701/ (CALCIUM, COLECALCIFEROL) [Concomitant]
  15. CICLOPIROX (CICLOPIROX) [Concomitant]
  16. INDAPAMIDE (INDAPAMIDE) [Concomitant]
  17. SELENIUM (SELENIUM) [Concomitant]
  18. MAGNESIUM (MAGNESIUM) [Concomitant]
  19. CARVEDILOL (CARVEDILOL) [Concomitant]
  20. LASIX	/00032601/ (FUROSEMIDE) [Concomitant]
  21. LOPROX (CICLOPIROX OLAMINE) [Concomitant]
  22. LUPRON DEPOT-3 MONTH (LEUPRORELIN ACETATE) [Concomitant]
  23. PREVACID (LANSOPRAZOLE) [Concomitant]
  24. IRON (IRON) [Concomitant]

REACTIONS (9)
  - Appendicitis [None]
  - Diarrhoea [None]
  - Back pain [None]
  - Chest pain [None]
  - Pain [None]
  - Constipation [None]
  - Drug dose omission [None]
  - Bone pain [None]
  - Arthralgia [None]
